FAERS Safety Report 9731836 (Version 1)
Quarter: 2013Q4

REPORT INFORMATION
  Report Type: Spontaneous
  Country: GB (occurrence: GB)
  Receive Date: 20131205
  Receipt Date: 20131205
  Transmission Date: 20140711
  Serious: Yes (Life-Threatening, Disabling)
  Sender: FDA-Public Use
  Company Number: GB-ROCHE-1310801

PATIENT
  Age: 42 Year
  Sex: 0

DRUGS (1)
  1. ROACTEMRA [Suspect]
     Indication: PRODUCT USED FOR UNKNOWN INDICATION
     Route: 065

REACTIONS (3)
  - Congestive cardiomyopathy [Unknown]
  - Drug intolerance [Unknown]
  - Gastrointestinal disorder [Unknown]
